FAERS Safety Report 8397451-X (Version None)
Quarter: 2012Q2

REPORT INFORMATION
  Report Type: 
  Country: None (occurrence: None)
  Receive Date: 20120529
  Receipt Date: 20120529
  Transmission Date: 20120825
  Serious: No
  Sender: FDA-Public Use
  Company Number: None

PATIENT
  Age: 29 Year
  Sex: Female
  Weight: 68.0396 kg

DRUGS (2)
  1. ALLER-TEC, CETIRIZINE HCL 10 MG PERRIGO [Suspect]
     Indication: MULTIPLE ALLERGIES
     Dosage: 10MG ONE CA DAY PO
     Route: 048
     Dates: start: 20071020, end: 20120525
  2. ALLER-TEC, CETIRIZINE HCL 10 MG PERRIGO [Suspect]
     Indication: RHINITIS
     Dosage: 10MG ONE CA DAY PO
     Route: 048
     Dates: start: 20071020, end: 20120525

REACTIONS (6)
  - SCRATCH [None]
  - DRUG INEFFECTIVE [None]
  - DRUG DEPENDENCE [None]
  - PRURITUS [None]
  - DRUG WITHDRAWAL SYNDROME [None]
  - IRRITABILITY [None]
